FAERS Safety Report 21986618 (Version 2)
Quarter: 2025Q1

REPORT INFORMATION
  Report Type: Report from Study
  Country: JP (occurrence: JP)
  Receive Date: 20230213
  Receipt Date: 20250127
  Transmission Date: 20250409
  Serious: Yes (Life-Threatening, Hospitalization)
  Sender: PFIZER
  Company Number: JP-PFIZER INC-202200285136

PATIENT
  Age: 26 Year
  Sex: Female
  Weight: 48 kg

DRUGS (30)
  1. SIROLIMUS [Suspect]
     Active Substance: SIROLIMUS
     Indication: Gorham^s disease
     Dosage: 2 MG, 1X/DAY (2 MG,1 D)
     Route: 048
     Dates: start: 20211206, end: 20211227
  2. SIROLIMUS [Suspect]
     Active Substance: SIROLIMUS
     Dosage: 2 MG, 1X/DAY (2 MG,1 D)
     Route: 048
     Dates: start: 20220104, end: 20220106
  3. SIROLIMUS [Suspect]
     Active Substance: SIROLIMUS
     Dosage: 1 MG, 1X/DAY (1 MG,1 D)
     Route: 048
     Dates: start: 20220118, end: 20220131
  4. SIROLIMUS [Suspect]
     Active Substance: SIROLIMUS
     Dosage: 2 MG, 1X/DAY (2 MG,1 D)
     Route: 048
     Dates: start: 20220316, end: 20220325
  5. CEPHALEXIN [Suspect]
     Active Substance: CEPHALEXIN
     Route: 048
     Dates: start: 20211220, end: 20211226
  6. ALFACALCIDOL [Concomitant]
     Active Substance: ALFACALCIDOL
     Indication: Prophylaxis
     Route: 048
  7. INDERAL [Concomitant]
     Active Substance: PROPRANOLOL HYDROCHLORIDE
     Indication: Gorham^s disease
     Route: 048
     Dates: end: 20220309
  8. LEVOCARNITINE [Concomitant]
     Active Substance: LEVOCARNITINE
     Route: 048
  9. VALPROATE SODIUM [Concomitant]
     Active Substance: VALPROATE SODIUM
     Route: 048
  10. LANSOPRAZOLE [Concomitant]
     Active Substance: LANSOPRAZOLE
     Indication: Prophylaxis
     Route: 048
  11. PREGABALIN [Concomitant]
     Active Substance: PREGABALIN
     Route: 048
  12. MAGNESIUM OXIDE [Concomitant]
     Active Substance: MAGNESIUM OXIDE
     Route: 048
  13. LOXOPROFEN [Concomitant]
     Active Substance: LOXOPROFEN
     Route: 048
  14. CALCIUM LACTATE [Concomitant]
     Active Substance: CALCIUM LACTATE
     Indication: Prophylaxis
     Route: 048
  15. ZOMETA [Concomitant]
     Active Substance: ZOLEDRONIC ACID
     Indication: Gorham^s disease
  16. CYANOCOBALAMIN [Concomitant]
     Active Substance: CYANOCOBALAMIN
     Indication: Prophylaxis
     Route: 047
  17. HYALURONATE SODIUM [Concomitant]
     Active Substance: HYALURONATE SODIUM
     Indication: Prophylaxis
     Route: 047
  18. KETOPROFEN [Concomitant]
     Active Substance: KETOPROFEN
     Indication: Gorham^s disease
  19. CALONAL [Concomitant]
     Active Substance: ACETAMINOPHEN
     Route: 048
  20. POVIDONE-IODINE [Concomitant]
     Active Substance: POVIDONE-IODINE
  21. PETROLATUM [Concomitant]
     Active Substance: PETROLATUM
  22. SODIUM FERROUS CITRATE [Concomitant]
     Active Substance: SODIUM FERROUS CITRATE
     Route: 048
     Dates: start: 20211210, end: 20220126
  23. POLAPREZINC [Concomitant]
     Active Substance: POLAPREZINC
     Route: 048
     Dates: start: 20220418, end: 20220509
  24. SOLIFENACIN SUCCINATE [Concomitant]
     Active Substance: SOLIFENACIN SUCCINATE
     Route: 048
     Dates: start: 20220519
  25. SULFAMETHOXAZOLE\TRIMETHOPRIM [Concomitant]
     Active Substance: SULFAMETHOXAZOLE\TRIMETHOPRIM
     Indication: Prophylaxis
     Route: 048
     Dates: start: 20220510
  26. CEFAZOLIN SODIUM [Concomitant]
     Active Substance: CEFAZOLIN SODIUM
     Dates: start: 20211129, end: 20211220
  27. CEFEPIME [Concomitant]
     Active Substance: CEFEPIME HYDROCHLORIDE
     Dates: start: 20220323, end: 20220330
  28. CEFTRIAXONE SODIUM [Concomitant]
     Active Substance: CEFTRIAXONE SODIUM
     Dates: start: 20220330, end: 20220509
  29. VANCOMYCIN [Concomitant]
     Active Substance: VANCOMYCIN
     Dates: start: 20220324, end: 20220509
  30. METRONIDAZOLE [Concomitant]
     Active Substance: METRONIDAZOLE
     Dates: start: 20220324, end: 20220330

REACTIONS (9)
  - Meningitis [Recovered/Resolved]
  - Shunt infection [Recovered/Resolved]
  - Pelvic abscess [Recovered/Resolved]
  - Nausea [Recovered/Resolved]
  - Decreased appetite [Recovered/Resolved]
  - Vomiting [Recovered/Resolved]
  - Nausea [Recovered/Resolved]
  - Vomiting [Recovered/Resolved]
  - Nausea [Recovered/Resolved]

NARRATIVE: CASE EVENT DATE: 20211225
